FAERS Safety Report 4302455-X (Version None)
Quarter: 2004Q1

REPORT INFORMATION
  Report Type: 
  Country: None (occurrence: None)
  Receive Date: 20040218
  Receipt Date: 20040102
  Transmission Date: 20041129
  Serious: Yes (Other)
  Sender: FDA-Public Use
  Company Number: 200410007US

PATIENT
  Age: 64 Year
  Sex: Male

DRUGS (8)
  1. LANTUS [Suspect]
     Indication: DIABETES MELLITUS NON-INSULIN-DEPENDENT
     Dosage: 52 U QAM
     Dates: end: 20040101
  2. LANTUS [Suspect]
     Indication: DIABETES MELLITUS NON-INSULIN-DEPENDENT
     Dosage: 50 U QAM
     Dates: start: 20040102
  3. GLIPIZIDE [Concomitant]
  4. MONOPRIL [Concomitant]
  5. SPIRONOLACTONE [Concomitant]
  6. ALLOPURINOL [Concomitant]
  7. COREG [Concomitant]
  8. SIMVASTATIN [Concomitant]

REACTIONS (4)
  - BLOOD GLUCOSE DECREASED [None]
  - DIZZINESS [None]
  - LOSS OF CONSCIOUSNESS [None]
  - SHOCK HYPOGLYCAEMIC [None]
